FAERS Safety Report 8611294-0 (Version None)
Quarter: 2012Q3

REPORT INFORMATION
  Report Type: 
  Country: None (occurrence: None)
  Receive Date: 20120822
  Receipt Date: 20120814
  Transmission Date: 20120928
  Serious: Yes (Other)
  Sender: FDA-Public Use
  Company Number: ES-ELI_LILLY_AND_COMPANY-ES201201008274

PATIENT
  Age: 78 Year
  Sex: Female
  Weight: 59 kg

DRUGS (11)
  1. ZOMETA [Concomitant]
     Indication: LUNG NEOPLASM MALIGNANT
     Dosage: UNK
     Dates: end: 20111214
  2. FOLIC ACID [Concomitant]
     Indication: LUNG NEOPLASM MALIGNANT
  3. VITAMIN B-12 [Concomitant]
     Dosage: UNK, UNKNOWN
     Route: 065
  4. LORAZEPAM [Concomitant]
     Indication: INSOMNIA
  5. ALIMTA [Suspect]
     Indication: LUNG CARCINOMA CELL TYPE UNSPECIFIED STAGE IV
     Dosage: UNK, UNKNOWN
     Route: 065
     Dates: start: 20111005, end: 20111214
  6. VENORUTON [Concomitant]
     Indication: VENOUS INSUFFICIENCY
  7. PANTOPRAZOLE [Concomitant]
     Indication: PROPHYLAXIS
  8. DEXAMETHASONE [Concomitant]
     Indication: ASTHENIA
  9. MAGNESIUM [Concomitant]
     Indication: CONSTIPATION
  10. ESCITALOPRAM [Concomitant]
     Indication: DEPRESSION
  11. EMPORTAL [Concomitant]

REACTIONS (1)
  - HEPATOTOXICITY [None]
